FAERS Safety Report 22080310 (Version 3)
Quarter: 2023Q1

REPORT INFORMATION
  Report Type: Report from Study
  Country: CO (occurrence: CO)
  Receive Date: 20230309
  Receipt Date: 20230320
  Transmission Date: 20230418
  Serious: Yes (Hospitalization, Other)
  Sender: FDA-Public Use
  Company Number: CO-BAYER-2023A028902

PATIENT
  Age: 79 Year
  Sex: Male

DRUGS (2)
  1. NEXAVAR [Suspect]
     Active Substance: SORAFENIB
     Indication: Hepatocellular carcinoma
     Dosage: 400 MG, BID
     Dates: start: 20210821
  2. NEXAVAR [Suspect]
     Active Substance: SORAFENIB
     Indication: Hepatocellular carcinoma
     Dosage: 1200 MG DAY
     Route: 048

REACTIONS (4)
  - Hepatocellular carcinoma [Unknown]
  - Cholelithiasis [Not Recovered/Not Resolved]
  - Blood test abnormal [Unknown]
  - Treatment failure [Unknown]

NARRATIVE: CASE EVENT DATE: 20230303
